FAERS Safety Report 15627455 (Version 1)
Quarter: 2018Q4

REPORT INFORMATION
  Report Type: Spontaneous
  Country: JP (occurrence: JP)
  Receive Date: 20181116
  Receipt Date: 20181116
  Transmission Date: 20190205
  Serious: Yes (Other)
  Sender: FDA-Public Use
  Company Number: JP-ABBVIE-18S-087-2533732-00

PATIENT
  Age: 79 Year
  Sex: Female

DRUGS (4)
  1. XYLOCAINE [Concomitant]
     Active Substance: LIDOCAINE HYDROCHLORIDE
     Indication: PRODUCT USED FOR UNKNOWN INDICATION
     Route: 065
     Dates: start: 20181012, end: 20181012
  2. ANAPEINE [Concomitant]
     Active Substance: ROPIVACAINE HYDROCHLORIDE
     Indication: POSTOPERATIVE ANALGESIA
     Dosage: 45 MG (DILUTED TO 0.15% SOLUTION WITH SALINE; 3 IN 1 DAY)
     Route: 065
     Dates: start: 20181012, end: 20181012
  3. ANAPEINE [Concomitant]
     Active Substance: ROPIVACAINE HYDROCHLORIDE
     Indication: PERIOPERATIVE ANALGESIA
  4. POPSCAINE [Suspect]
     Active Substance: LEVOBUPIVACAINE HYDROCHLORIDE
     Indication: POSTOPERATIVE ANALGESIA
     Dosage: 280 MG/43 HR
     Route: 008
     Dates: start: 20181012, end: 20181014

REACTIONS (1)
  - Spinal cord disorder [Recovering/Resolving]

NARRATIVE: CASE EVENT DATE: 20181013
